FAERS Safety Report 9257191 (Version 1)
Quarter: 2013Q2

REPORT INFORMATION
  Report Type: Report from Study
  Country: BR (occurrence: BR)
  Receive Date: 20130426
  Receipt Date: 20130426
  Transmission Date: 20140414
  Serious: Yes (Other)
  Sender: FDA-Public Use
  Company Number: PHHY2013BR039926

PATIENT
  Sex: Male

DRUGS (4)
  1. FORASEQ [Suspect]
     Indication: ASTHMA
     Dosage: 1 DF, DAILY (12/200MCG)
  2. FORASEQ [Suspect]
     Dosage: UNK (12/400 MCG)
  3. FORASEQ [Suspect]
     Dosage: 1 DF, DAILY (12/200MCG)
  4. BUDESONIDE [Suspect]
     Indication: ASTHMA
     Dosage: 1 DF, BID

REACTIONS (4)
  - Bundle branch block right [Unknown]
  - Cyanosis [Unknown]
  - Dyspnoea [Unknown]
  - Tachycardia [Unknown]
